FAERS Safety Report 6060448-9 (Version None)
Quarter: 2009Q1

REPORT INFORMATION
  Report Type: 
  Country: None (occurrence: None)
  Receive Date: 20090129
  Receipt Date: 20090113
  Transmission Date: 20090719
  Serious: Yes (Hospitalization)
  Sender: FDA-Public Use
  Company Number: 8041168

PATIENT
  Age: 29 Year
  Sex: Male

DRUGS (3)
  1. KEPPRA [Suspect]
     Indication: CONVULSION
     Dosage: 500 MG IV
     Route: 042
     Dates: start: 20090113, end: 20090113
  2. KEPPRA [Suspect]
     Indication: CONVULSION
     Dosage: 1000 MG 2/D PO
     Route: 048
  3. LAMICTAL [Concomitant]

REACTIONS (2)
  - CONVULSION [None]
  - INFUSION SITE EXTRAVASATION [None]
